FAERS Safety Report 5411773-3 (Version None)
Quarter: 2007Q3

REPORT INFORMATION
  Report Type: 
  Country: None (occurrence: None)
  Receive Date: 20070813
  Receipt Date: 20070804
  Transmission Date: 20080115
  Serious: Yes (Other)
  Sender: FDA-Public Use
  Company Number: PHBS2007SE13088

PATIENT
  Sex: Female

DRUGS (3)
  1. ESIDRIX [Suspect]
     Dosage: 25 MG/DAY
     Route: 048
     Dates: start: 20060801
  2. ENALAPRIL MALEATE [Concomitant]
     Dosage: 15 MG/DAY
     Route: 065
     Dates: start: 20050101
  3. OMEGA 3 [Concomitant]
     Dosage: 5 ML/DAY
     Route: 065

REACTIONS (8)
  - ANGINA PECTORIS [None]
  - DEPRESSION [None]
  - HAIR GROWTH ABNORMAL [None]
  - HEADACHE [None]
  - ONYCHOCLASIS [None]
  - PHOTOSENSITIVITY REACTION [None]
  - URINARY TRACT DISORDER [None]
  - VERTIGO [None]
